FAERS Safety Report 11945227 (Version 2)
Quarter: 2016Q1

REPORT INFORMATION
  Report Type: Report from Study
  Country: US (occurrence: US)
  Receive Date: 20160125
  Receipt Date: 20160202
  Transmission Date: 20160526
  Serious: Yes (Death, Hospitalization)
  Sender: FDA-Public Use
  Company Number: US-JNJFOC-20160116224

PATIENT
  Sex: Male

DRUGS (8)
  1. INDOMETHACIN. [Concomitant]
     Active Substance: INDOMETHACIN
     Dosage: WHEN NECESSARY (PRN) ONCE DAILY
     Route: 048
     Dates: start: 20140728
  2. SINGULAIR [Concomitant]
     Active Substance: MONTELUKAST SODIUM
     Route: 048
     Dates: start: 20150624
  3. TAMSULOSIN HYDROCHLORIDE. [Concomitant]
     Active Substance: TAMSULOSIN HYDROCHLORIDE
     Dates: start: 201511
  4. IMBRUVICA [Suspect]
     Active Substance: IBRUTINIB
     Indication: CHRONIC LYMPHOCYTIC LEUKAEMIA
     Route: 048
  5. HYDROCHLOROTHIAZIDE WITH METHYLDOPA [Concomitant]
     Dosage: 5 MG-1.5 MG/ 5ML PRN Q6H
     Dates: start: 20151019
  6. COLACE [Concomitant]
     Active Substance: DOCUSATE SODIUM
     Dates: start: 20151019
  7. NORCO [Concomitant]
     Active Substance: ACETAMINOPHEN\HYDROCODONE BITARTRATE
     Dosage: 5/325 MG PRN Q 4 H
     Dates: start: 20141110
  8. IMBRUVICA [Suspect]
     Active Substance: IBRUTINIB
     Indication: NON-HODGKIN^S LYMPHOMA
     Route: 048

REACTIONS (2)
  - Death [Fatal]
  - Adverse event [Unknown]
